FAERS Safety Report 8320062 (Version 2)
Quarter: 2012Q4

REPORT INFORMATION
  Report Type: Report from Study
  Country: IT (occurrence: IT)
  Receive Date: 20120103
  Receipt Date: 20121019
  Transmission Date: 20130627
  Serious: Yes (Death, Other)
  Sender: FDA-Public Use
  Company Number: IT-CELGENEUS-083-21880-11113923

PATIENT
  Age: 64 Year
  Sex: Male

DRUGS (3)
  1. REVLIMID [Suspect]
     Indication: NON-HODGKIN^S LYMPHOMA
     Dosage: 25 Milligram
     Route: 048
     Dates: start: 20091207
  2. REVLIMID [Suspect]
     Dosage: 25 Milligram
     Route: 048
     Dates: start: 20100108
  3. DEXAMETHASONE [Suspect]
     Indication: NON-HODGKIN^S LYMPHOMA
     Route: 065

REACTIONS (6)
  - Non-Hodgkin^s lymphoma [Fatal]
  - Asthenia [Unknown]
  - Dyspnoea [Unknown]
  - Asthenia [Unknown]
  - Dyspnoea [Unknown]
  - Oedema [Unknown]
